FAERS Safety Report 4612067-6 (Version None)
Quarter: 2005Q2

REPORT INFORMATION
  Report Type: 
  Country: None (occurrence: None)
  Receive Date: 20050308
  Receipt Date: 20041230
  Transmission Date: 20051028
  Serious: Yes (Other)
  Sender: FDA-Public Use
  Company Number: 2004UW26312

PATIENT
  Age: 72 Year
  Weight: 58.967 kg

DRUGS (7)
  1. CRESTOR [Suspect]
     Indication: HYPERCHOLESTEROLAEMIA
     Dosage: 10 MG QD PO
     Route: 048
  2. ZETIA [Concomitant]
  3. NORVASC [Concomitant]
  4. CLONIDINE [Concomitant]
  5. DIOVAN [Concomitant]
  6. METOPROLOL [Concomitant]
  7. VITAMINS NOS [Concomitant]

REACTIONS (3)
  - HAEMATOCHEZIA [None]
  - MICTURITION DISORDER [None]
  - MUSCULAR WEAKNESS [None]
